FAERS Safety Report 7782558-8 (Version None)
Quarter: 2011Q3

REPORT INFORMATION
  Report Type: 
  Country: None (occurrence: None)
  Receive Date: 20110923
  Receipt Date: 20110912
  Transmission Date: 20111222
  Serious: Yes (Hospitalization)
  Sender: FDA-Public Use
  Company Number: JP-1187995

PATIENT
  Age: 55 Year
  Sex: Male

DRUGS (2)
  1. FLUORESCITE [Suspect]
     Indication: ANGIOGRAM RETINA
     Dosage: (500 MG INTRAVENOUS BOLUS)
     Route: 040
  2. WARFARIN SODIUM [Concomitant]

REACTIONS (5)
  - ANAPHYLACTIC SHOCK [None]
  - NAUSEA [None]
  - HEPATIC CIRRHOSIS [None]
  - ISCHAEMIC HEPATITIS [None]
  - VOMITING [None]
